FAERS Safety Report 8891438 (Version 1)
Quarter: 2012Q4

REPORT INFORMATION
  Report Type: Spontaneous
  Country: US (occurrence: None)
  Receive Date: 20121031
  Receipt Date: 20121031
  Transmission Date: 20130627
  Serious: Yes (Other)
  Sender: FDA-Public Use
  Company Number: US-1194803

PATIENT
  Age: 81 Year
  Sex: Female

DRUGS (3)
  1. DUREZOL [Suspect]
     Indication: POSTOPERATIVE CARE
     Route: 047
     Dates: start: 20120824
  2. VIGAMOX [Suspect]
     Indication: POSTOPERATIVE CARE
     Route: 047
     Dates: start: 20120824
  3. VIGAMOX [Suspect]
     Indication: POSTOPERATIVE CARE
     Route: 047

REACTIONS (5)
  - Endophthalmitis [None]
  - Hypopyon [None]
  - Fibrin [None]
  - Anterior chamber cell [None]
  - Anterior chamber flare [None]
